FAERS Safety Report 16759837 (Version 1)
Quarter: 2019Q3

REPORT INFORMATION
  Report Type: Spontaneous
  Country: AR (occurrence: AR)
  Receive Date: 20190830
  Receipt Date: 20190830
  Transmission Date: 20191005
  Serious: Yes (Other)
  Sender: FDA-Public Use
  Company Number: AR-PFIZER INC-2019367610

PATIENT
  Age: 71 Year
  Sex: Female

DRUGS (1)
  1. XELJANZ XR [Suspect]
     Active Substance: TOFACITINIB CITRATE
     Indication: RHEUMATOID ARTHRITIS
     Dosage: 11 MG, 1X/DAY
     Dates: start: 20181029

REACTIONS (5)
  - Arthropathy [Recovered/Resolved]
  - Liver disorder [Recovered/Resolved]
  - Joint dislocation [Not Recovered/Not Resolved]
  - Product dose omission [Recovered/Resolved]
  - Arthritis [Recovered/Resolved]

NARRATIVE: CASE EVENT DATE: 201907
